FAERS Safety Report 5258410-9 (Version None)
Quarter: 2007Q1

REPORT INFORMATION
  Report Type: 
  Country: None (occurrence: None)
  Receive Date: 20070305
  Receipt Date: 20070216
  Transmission Date: 20070707
  Serious: Yes (Hospitalization, Other)
  Sender: FDA-Public Use
  Company Number: 2007RR-05860

PATIENT
  Age: 30 Week
  Sex: Female
  Weight: 1.1 kg

DRUGS (1)
  1. IBUPROFEN [Suspect]
     Indication: PATENT DUCTUS ARTERIOSUS
     Dosage: ORAL
     Route: 048

REACTIONS (1)
  - INTESTINAL PERFORATION [None]
